FAERS Safety Report 10284006 (Version 3)
Quarter: 2015Q2

REPORT INFORMATION
  Report Type: Spontaneous
  Country: US (occurrence: US)
  Receive Date: 20140708
  Receipt Date: 20150527
  Transmission Date: 20150821
  Serious: No
  Sender: FDA-Public Use
  Company Number: US-GLAXOSMITHKLINE-A1069622A

PATIENT
  Age: 46 Year
  Sex: Female
  Weight: 82.3 kg

DRUGS (3)
  1. OMEPRAZOLE TABLET [Concomitant]
     Indication: GASTROOESOPHAGEAL REFLUX DISEASE
  2. POTIGA [Suspect]
     Active Substance: EZOGABINE
     Indication: SEIZURE
     Dosage: INITIATED AT 50 MG TWICE DAILY FOR 1 WEEK THEN 100 MG DAILY FOR 1 WEEK THEN 200 MG DAILY. ALSO [...]
     Route: 048
     Dates: start: 201303
  3. POTIGA [Suspect]
     Active Substance: EZOGABINE
     Indication: COMPLEX PARTIAL SEIZURES
     Dosage: 7.5 MG/KG/DAY
     Dates: end: 201404

REACTIONS (6)
  - Visual impairment [Not Recovered/Not Resolved]
  - Optical coherence tomography abnormal [Not Recovered/Not Resolved]
  - Retinal disorder [Not Recovered/Not Resolved]
  - Dry eye [Not Recovered/Not Resolved]
  - Vision blurred [Recovered/Resolved]
  - Maculopathy [Not Recovered/Not Resolved]

NARRATIVE: CASE EVENT DATE: 20131216
